FAERS Safety Report 6365900-4 (Version None)
Quarter: 2009Q3

REPORT INFORMATION
  Report Type: 
  Country: None (occurrence: None)
  Receive Date: 20090919
  Receipt Date: 20090824
  Transmission Date: 20100115
  Serious: No
  Sender: FDA-Public Use
  Company Number: US-ABBOTT-09P-163-0593191-00

PATIENT
  Sex: Female
  Weight: 82.174 kg

DRUGS (1)
  1. HUMIRA [Suspect]
     Indication: CROHN'S DISEASE
     Dates: start: 20090527, end: 20090818

REACTIONS (3)
  - LYMPHADENOPATHY [None]
  - OROPHARYNGEAL PAIN [None]
  - PHARYNGITIS STREPTOCOCCAL [None]
